FAERS Safety Report 7527509 (Version 5)
Quarter: 2012Q4

REPORT INFORMATION
  Report Type: 
  Country: AU (occurrence: AU)
  Receive Date: 20100804
  Receipt Date: 20121106
  Transmission Date: 20130627
  Serious: Yes (Hospitalization)
  Sender: FDA-Public Use
  Company Number: PHHY2010AU48614

PATIENT
  Age: 33 Year
  Sex: Male

DRUGS (5)
  1. CLOZARIL [Suspect]
     Dosage: 400 mg
     Route: 048
     Dates: start: 20070412
  2. CLOZARIL [Suspect]
     Dosage: 750 mg, (350 mg Mane and 400mg Nocte)
     Route: 048
     Dates: start: 2009
  3. CLOZARIL [Suspect]
     Dosage: 700 mg, UNK
  4. ARIPIPRAZOLE [Concomitant]
     Indication: MAMMOPLASTY
     Dosage: 30 mg, QD
     Route: 048
  5. VALPROATE SODIUM [Concomitant]
     Dosage: 500 mg, UNK

REACTIONS (8)
  - Mental disorder [Recovering/Resolving]
  - Mental impairment [Recovering/Resolving]
  - Schizophrenia [Unknown]
  - Stress [Unknown]
  - Agitation [Unknown]
  - Anxiety [Unknown]
  - Wrong technique in drug usage process [Unknown]
  - Gamma-glutamyltransferase increased [Unknown]
